FAERS Safety Report 16692901 (Version 1)
Quarter: 2019Q4

REPORT INFORMATION
  Report Type: Spontaneous
  Country: US (occurrence: US)
  Receive Date: 20190810
  Receipt Date: 20190810
  Transmission Date: 20200122
  Serious: Yes (Life-Threatening, Hospitalization, Disabling)
  Sender: FDA-Public Use
  Company Number: None

PATIENT
  Age: 36 Year
  Sex: Male
  Weight: 50.4 kg

DRUGS (10)
  1. BACLOFEN. [Concomitant]
     Active Substance: BACLOFEN
  2. CEPHALEXIN. [Concomitant]
     Active Substance: CEPHALEXIN
  3. XANAX [Suspect]
     Active Substance: ALPRAZOLAM
     Indication: PANIC ATTACK
     Dosage: ?          QUANTITY:120 TABLET(S);?          THERAPY ONGOING: Y
     Route: 048
     Dates: start: 20161006, end: 20180403
  4. EXCEDRIN [Concomitant]
     Active Substance: ACETAMINOPHEN\ASPIRIN\CAFFEINE
  5. CBD TABLETS [Concomitant]
  6. XANAX [Suspect]
     Active Substance: ALPRAZOLAM
     Indication: INSOMNIA
     Dosage: ?          QUANTITY:120 TABLET(S);?          THERAPY ONGOING: Y
     Route: 048
     Dates: start: 20161006, end: 20180403
  7. XANAX [Suspect]
     Active Substance: ALPRAZOLAM
     Indication: ANXIETY
     Dosage: ?          QUANTITY:120 TABLET(S);?          THERAPY ONGOING: Y
     Route: 048
     Dates: start: 20161006, end: 20180403
  8. VALIUM [Concomitant]
     Active Substance: DIAZEPAM
  9. TOVIAZ [Concomitant]
     Active Substance: FESOTERODINE FUMARATE
  10. TYLENOL [Concomitant]
     Active Substance: ACETAMINOPHEN

REACTIONS (7)
  - Withdrawal syndrome [None]
  - Withdrawal catatonia [None]
  - Suicidal ideation [None]
  - Pain [None]
  - Drug dependence [None]
  - Quality of life decreased [None]
  - Product communication issue [None]

NARRATIVE: CASE EVENT DATE: 20180403
